FAERS Safety Report 5407529-8 (Version None)
Quarter: 2007Q3

REPORT INFORMATION
  Report Type: 
  Country: None (occurrence: None)
  Receive Date: 20070807
  Receipt Date: 20070723
  Transmission Date: 20080115
  Serious: Yes (Other)
  Sender: FDA-Public Use
  Company Number: DE-GENENTECH-245653

PATIENT
  Sex: Female

DRUGS (2)
  1. HERCEPTIN [Suspect]
     Indication: BREAST CANCER
  2. TAXANE NOS [Suspect]
     Indication: BREAST CANCER

REACTIONS (4)
  - AUTOIMMUNE DISORDER [None]
  - JAUNDICE [None]
  - PYREXIA [None]
  - RENAL FAILURE [None]
